FAERS Safety Report 9178910 (Version 1)
Quarter: 2013Q1

REPORT INFORMATION
  Report Type: Spontaneous
  Country: US (occurrence: US)
  Receive Date: 20130321
  Receipt Date: 20130321
  Transmission Date: 20140127
  Serious: Yes (Hospitalization)
  Sender: FDA-Public Use
  Company Number: US-BAYER-2013-032018

PATIENT
  Age: 45 Year
  Sex: Female
  Weight: 79.37 kg

DRUGS (6)
  1. YASMIN [Suspect]
     Indication: CONTRACEPTION
  2. YASMIN [Suspect]
     Indication: MENSTRUAL CYCLE MANAGEMENT
  3. CARISOPRODOL [Concomitant]
     Dosage: 35 MG, UNK
     Route: 048
     Dates: start: 20030709
  4. CELEBREX [Concomitant]
     Dosage: UNK
     Route: 048
     Dates: start: 20030712
  5. APAP W/HYDROCODONE [Concomitant]
     Dosage: UNK
     Route: 048
     Dates: start: 20030812
  6. PROPOXYPHENE HYDROCHLORIDE W/PARACETAMOL [Concomitant]
     Dosage: UNK
     Route: 048
     Dates: start: 20030709

REACTIONS (1)
  - Deep vein thrombosis [Recovered/Resolved]
